FAERS Safety Report 7641551-6 (Version None)
Quarter: 2011Q3

REPORT INFORMATION
  Report Type: 
  Country: None (occurrence: None)
  Receive Date: 20110728
  Receipt Date: 20110719
  Transmission Date: 20111222
  Serious: Yes (Disabling)
  Sender: FDA-Public Use
  Company Number: DE-JNJFOC-20110709163

PATIENT
  Age: 42 Year
  Sex: Male

DRUGS (3)
  1. IBUPROFEN [Concomitant]
     Route: 065
  2. ZIPRASIDONE HYDROCHLORIDE [Concomitant]
     Route: 065
  3. LEVOFLOXACIN [Suspect]
     Indication: PRODUCT USED FOR UNKNOWN INDICATION
     Dosage: FOR 10 DAYS
     Route: 048
     Dates: start: 20100801, end: 20100801

REACTIONS (2)
  - PAIN IN EXTREMITY [None]
  - WALKING DISABILITY [None]
